FAERS Safety Report 9844832 (Version 2)
Quarter: 2014Q2

REPORT INFORMATION
  Report Type: Spontaneous
  Country: GB (occurrence: None)
  Receive Date: 20140122
  Receipt Date: 20140507
  Transmission Date: 20141212
  Serious: Yes (Other)
  Sender: FDA-Public Use
  Company Number: AUR-APL-2014-00215

PATIENT
  Age: 1 Year
  Sex: Male
  Weight: 13.55 kg

DRUGS (4)
  1. AMOXICILLIN [Suspect]
     Indication: PRODUCT USED FOR UNKNOWN INDICATION
     Dates: start: 20131223
  2. HYDROCORTISONE (HYDROCORTISONE) [Concomitant]
  3. LACTULOSE (LACTULOSE) [Concomitant]
  4. WHITE SOFT PARAFFIN (WHITE SOFT PARAFFIN) [Concomitant]

REACTIONS (3)
  - Generalised erythema [None]
  - Feeling hot [None]
  - Urticaria [None]
